FAERS Safety Report 21566715 (Version 1)
Quarter: 2022Q4

REPORT INFORMATION
  Report Type: Spontaneous
  Country: US (occurrence: None)
  Receive Date: 20221107
  Receipt Date: 20221107
  Transmission Date: 20230112
  Serious: Yes (Hospitalization)
  Sender: FDA-Public Use
  Company Number: None

PATIENT
  Age: 64 Year
  Sex: Female

DRUGS (4)
  1. ENBREL [Suspect]
     Active Substance: ETANERCEPT
     Indication: Rheumatoid arthritis
     Dates: start: 20220513
  2. Dixepin HCL [Concomitant]
  3. PAROXETINE [Concomitant]
     Active Substance: PAROXETINE
  4. LINZESS [Concomitant]
     Active Substance: LINACLOTIDE

REACTIONS (1)
  - Fall [None]

NARRATIVE: CASE EVENT DATE: 20221001
